FAERS Safety Report 9373449 (Version 2)
Quarter: 2013Q3

REPORT INFORMATION
  Report Type: Spontaneous
  Country: AU (occurrence: AU)
  Receive Date: 20130627
  Receipt Date: 20130823
  Transmission Date: 20140515
  Serious: Yes (Hospitalization)
  Sender: FDA-Public Use
  Company Number: AU-009507513-1306AUS007726

PATIENT
  Age: 54 Year
  Sex: Male
  Weight: 93.5 kg

DRUGS (3)
  1. PEGATRON [Suspect]
     Indication: ANTIVIRAL TREATMENT
     Dosage: 150 MG, UNK
     Route: 058
     Dates: start: 20130614
  2. RIBAVIRIN [Suspect]
     Indication: ANTIVIRAL TREATMENT
     Dosage: 1200 MG, UNK
     Route: 048
     Dates: start: 20130614
  3. CITALOPRAM [Concomitant]
     Indication: DEPRESSION
     Dosage: 20 MG, UNK
     Route: 048
     Dates: start: 201305

REACTIONS (8)
  - Syncope [Recovered/Resolved]
  - Confusional state [Unknown]
  - Vomiting [Recovered/Resolved]
  - Diarrhoea [Recovered/Resolved]
  - Arthralgia [Recovered/Resolved]
  - Somnolence [Recovered/Resolved]
  - Unresponsive to stimuli [Recovered/Resolved]
  - Headache [Recovered/Resolved]
